FAERS Safety Report 23560278 (Version 1)
Quarter: 2024Q1

REPORT INFORMATION
  Report Type: Spontaneous
  Country: AU (occurrence: None)
  Receive Date: 20240223
  Receipt Date: 20240223
  Transmission Date: 20240409
  Serious: Yes (Other)
  Sender: FDA-Public Use
  Company Number: 2024A045756

PATIENT
  Age: 42 Year
  Sex: Male

DRUGS (17)
  1. QUETIAPINE FUMARATE [Suspect]
     Active Substance: QUETIAPINE FUMARATE
     Indication: Depression
  2. LITHIUM [Suspect]
     Active Substance: LITHIUM
     Indication: Depression
  3. OLANZAPINE [Suspect]
     Active Substance: OLANZAPINE
     Indication: Depression
  4. LEVOTHYROXINE-SODIUM [THYROXINE] [Concomitant]
     Indication: Hypothyroidism
  5. GLIMEPIRIDE [Concomitant]
     Active Substance: GLIMEPIRIDE
     Indication: Type 2 diabetes mellitus
  6. ACARBOSE [Concomitant]
     Active Substance: ACARBOSE
     Indication: Type 2 diabetes mellitus
  7. METFORMIN [Concomitant]
     Active Substance: METFORMIN HYDROCHLORIDE
     Indication: Insomnia
  8. EMPAGLIFLOZIN [Concomitant]
     Active Substance: EMPAGLIFLOZIN
     Indication: Type 2 diabetes mellitus
  9. EXENATIDE [Concomitant]
     Active Substance: EXENATIDE
     Indication: Type 2 diabetes mellitus
  10. RAMIPRIL [Concomitant]
     Active Substance: RAMIPRIL
     Indication: Hypertension
  11. LERCANIDIPINE [Concomitant]
     Active Substance: LERCANIDIPINE
  12. ATORVASTATIN [Concomitant]
     Active Substance: ATORVASTATIN
     Indication: Hypercholesterolaemia
  13. FINASTERIDE [Concomitant]
     Active Substance: FINASTERIDE
     Indication: Product used for unknown indication
  14. INDAPAMIDE [Concomitant]
     Active Substance: INDAPAMIDE
  15. GABAPENTIN [Concomitant]
     Active Substance: GABAPENTIN
     Indication: Product used for unknown indication
  16. ESOMEPRAZOLE [Concomitant]
     Active Substance: ESOMEPRAZOLE
     Indication: Gastrooesophageal reflux disease
  17. ALPRAZOLAM [Concomitant]
     Active Substance: ALPRAZOLAM
     Indication: Anxiety

REACTIONS (2)
  - Depression [Recovering/Resolving]
  - Drug ineffective [Unknown]
